FAERS Safety Report 4876397-5 (Version None)
Quarter: 2005Q4

REPORT INFORMATION
  Report Type: 
  Country: None (occurrence: None)
  Receive Date: 20051206
  Receipt Date: 20051017
  Transmission Date: 20060501
  Serious: No
  Sender: FDA-Public Use
  Company Number: USA0510111087

PATIENT
  Sex: Female

DRUGS (5)
  1. CYMBALTA [Suspect]
     Indication: DIABETES MELLITUS
     Dosage: 60 MG DAY
     Dates: start: 20050601, end: 20050901
  2. CYMBALTA [Suspect]
     Indication: PAIN
     Dosage: 60 MG DAY
     Dates: start: 20050601, end: 20050901
  3. COZAAR [Concomitant]
  4. NEXIUM [Concomitant]
  5. TYLENOL (CAPLET) [Concomitant]

REACTIONS (6)
  - BALANCE DISORDER [None]
  - DISSOCIATION [None]
  - DIZZINESS [None]
  - DRUG EFFECT DECREASED [None]
  - FATIGUE [None]
  - FEELING ABNORMAL [None]
